FAERS Safety Report 12341155 (Version 2)
Quarter: 2016Q2

REPORT INFORMATION
  Report Type: Spontaneous
  Country: None (occurrence: IT)
  Receive Date: 20160506
  Receipt Date: 20160524
  Transmission Date: 20160815
  Serious: Yes (Hospitalization)
  Sender: FDA-Public Use
  Company Number: IT-MERZ NORTH AMERICA, INC.-16MRZ-00247

PATIENT
  Age: 41 Year
  Sex: Female

DRUGS (2)
  1. XEOMIN [Suspect]
     Active Substance: INCOBOTULINUMTOXINA
     Indication: SKIN WRINKLING
     Dosage: 50 IU, 1 IN 1 TOTAL
     Route: 059
     Dates: start: 20151106, end: 20151106
  2. XEOMIN [Suspect]
     Active Substance: INCOBOTULINUMTOXINA
     Indication: SKIN WRINKLING

REACTIONS (6)
  - Nasal congestion [None]
  - Off label use [None]
  - Injection site paraesthesia [None]
  - Injection site pain [None]
  - Injection site swelling [None]
  - Incorrect route of drug administration [None]

NARRATIVE: CASE EVENT DATE: 20151113
